FAERS Safety Report 7804490-3 (Version None)
Quarter: 2011Q4

REPORT INFORMATION
  Report Type: 
  Country: None (occurrence: None)
  Receive Date: 20111010
  Receipt Date: 20110929
  Transmission Date: 20120403
  Serious: Yes (Hospitalization)
  Sender: FDA-Public Use
  Company Number: US-BAXTER-2011BH030764

PATIENT
  Age: 72 Year
  Sex: Male

DRUGS (1)
  1. DIANEAL [Suspect]
     Indication: PERITONEAL DIALYSIS
     Route: 033
     Dates: start: 20110115

REACTIONS (6)
  - FATIGUE [None]
  - COLD SWEAT [None]
  - DIARRHOEA [None]
  - NASOPHARYNGITIS [None]
  - VOMITING [None]
  - HYPOTENSION [None]
